FAERS Safety Report 10364342 (Version 2)
Quarter: 2014Q3

REPORT INFORMATION
  Report Type: Report from Study
  Country: CA (occurrence: CA)
  Receive Date: 20140806
  Receipt Date: 20140806
  Transmission Date: 20150326
  Serious: Yes (Other)
  Sender: FDA-Public Use
  Company Number: CA-BRISTOL-MYERS SQUIBB COMPANY-20597217

PATIENT
  Age: 73 Year
  Sex: Male

DRUGS (11)
  1. METHOTREXATE [Suspect]
     Active Substance: METHOTREXATE
  2. ALTACE [Concomitant]
     Active Substance: RAMIPRIL
  3. OMEPRAZOLE. [Concomitant]
     Active Substance: OMEPRAZOLE
  4. FOLIC ACID. [Concomitant]
     Active Substance: FOLIC ACID
  5. ORENCIA [Suspect]
     Active Substance: ABATACEPT
     Indication: RHEUMATOID ARTHRITIS
     Dosage: 1DF: 750UNITS NOS?ONGOING?LOT NO.4C89733,EXPI DATE-AUG2016
     Route: 042
     Dates: start: 20080407
  6. ALENDRONATE [Concomitant]
     Active Substance: ALENDRONATE SODIUM
  7. PREDNISONE. [Concomitant]
     Active Substance: PREDNISONE
  8. CARBOCAL [Concomitant]
     Active Substance: CALCIUM CARBONATE
  9. PROPANOLOL HYDROCHLORIDE [Concomitant]
  10. TEMAZEPAM. [Concomitant]
     Active Substance: TEMAZEPAM
  11. SIMVASTATIN. [Concomitant]
     Active Substance: SIMVASTATIN

REACTIONS (11)
  - Pulmonary fibrosis [Unknown]
  - Neck pain [Not Recovered/Not Resolved]
  - Arthritis infective [Unknown]
  - Pain in extremity [Unknown]
  - Hypoaesthesia [Unknown]
  - Back pain [Unknown]
  - Intervertebral disc protrusion [Unknown]
  - General physical health deterioration [Unknown]
  - Fatigue [Unknown]
  - Intervertebral disc protrusion [Unknown]
  - Asthenia [Unknown]

NARRATIVE: CASE EVENT DATE: 2011
